FAERS Safety Report 9781000 (Version 3)
Quarter: 2014Q2

REPORT INFORMATION
  Report Type: Report from Study
  Country: JP (occurrence: JP)
  Receive Date: 20131224
  Receipt Date: 20140425
  Transmission Date: 20141212
  Serious: Yes (Death)
  Sender: FDA-Public Use
  Company Number: JP-SA-2013SA133262

PATIENT
  Age: 36 Year
  Sex: Male
  Weight: 75.05 kg

DRUGS (12)
  1. THYMOGLOBULINE [Suspect]
     Indication: BONE MARROW CONDITIONING REGIMEN
     Dosage: ADMINISTERED OVER 12 HOURS
     Route: 042
     Dates: start: 20130303, end: 20130303
  2. FLUDARA [Concomitant]
     Indication: PREMEDICATION
     Dates: start: 20130301, end: 20130303
  3. ALKERAN [Concomitant]
     Indication: PREMEDICATION
     Dates: start: 20130301, end: 20130302
  4. PROGRAF [Concomitant]
     Indication: PROPHYLAXIS
     Dates: start: 20130303, end: 20130428
  5. MYCOPHENOLATE MOFETIL [Concomitant]
     Indication: PROPHYLAXIS
     Dates: start: 20130305, end: 20130428
  6. METHYLPREDNISOLONE [Concomitant]
     Indication: PROPHYLAXIS
     Dates: start: 20130301, end: 20130428
  7. CEFEPIME [Concomitant]
     Indication: PROPHYLAXIS
     Dates: start: 20130301, end: 20130428
  8. AMLODIN [Concomitant]
     Indication: PROPHYLAXIS
     Dates: start: 20130301, end: 20130428
  9. LANSOPRAZOLE [Concomitant]
     Indication: PROPHYLAXIS
     Dates: start: 20130301, end: 20130428
  10. URSO [Concomitant]
     Indication: PROPHYLAXIS
     Dates: start: 20130301, end: 20130428
  11. VFEND [Concomitant]
     Indication: PROPHYLAXIS
     Dates: start: 20130301, end: 20130428
  12. ACICLOVIR [Concomitant]
     Indication: PROPHYLAXIS
     Dates: start: 20130301, end: 20130428

REACTIONS (1)
  - Multi-organ failure [Fatal]
